FAERS Safety Report 16253952 (Version 1)
Quarter: 2019Q2

REPORT INFORMATION
  Report Type: Spontaneous
  Country: GB (occurrence: GB)
  Receive Date: 20190430
  Receipt Date: 20190430
  Transmission Date: 20190711
  Serious: Yes (Death)
  Sender: FDA-Public Use
  Company Number: GB-TEVA-2019-GB-1043039

PATIENT
  Age: 89 Year
  Sex: Female

DRUGS (1)
  1. CO-AMOXICLAV [Suspect]
     Active Substance: AMOXICILLIN\CLAVULANATE POTASSIUM
     Dates: start: 20181023

REACTIONS (2)
  - Cardiac arrest [Fatal]
  - Documented hypersensitivity to administered product [Fatal]

NARRATIVE: CASE EVENT DATE: 20181023
